FAERS Safety Report 17570684 (Version 1)
Quarter: 2020Q1

REPORT INFORMATION
  Report Type: Spontaneous
  Country: IT (occurrence: IT)
  Receive Date: 20200323
  Receipt Date: 20200323
  Transmission Date: 20200409
  Serious: Yes (Other)
  Sender: FDA-Public Use
  Company Number: IT-AUROBINDO-AUR-APL-2020-013672

PATIENT
  Age: 70 Year
  Sex: Male
  Weight: 80 kg

DRUGS (4)
  1. LORMETAZEPAM [Concomitant]
     Active Substance: LORMETAZEPAM
     Indication: INSOMNIA
     Dosage: 15 GTT DROPS, ONCE A DAY
     Route: 065
     Dates: start: 20200221
  2. PIPERACILLIN AND TAZOBACTAM [Concomitant]
     Active Substance: PIPERACILLIN SODIUM\TAZOBACTAM SODIUM
     Indication: PNEUMONITIS
     Dosage: 3 DOSAGE FORM, ONCE A DAY
     Route: 065
     Dates: start: 20200220
  3. LEVOFLOXACIN AUROBINDO FILM-COATED TABLETS 500MG [Suspect]
     Active Substance: LEVOFLOXACIN
     Indication: PNEUMONITIS
     Dosage: 750 MILLIGRAM, ONCE A DAY
     Route: 048
     Dates: start: 20200218, end: 20200227
  4. FOLICOM [Concomitant]
     Indication: ANAEMIA
     Dosage: 5 MILLIGRAM, ONCE A DAY
     Route: 065

REACTIONS (1)
  - Pneumothorax [Not Recovered/Not Resolved]

NARRATIVE: CASE EVENT DATE: 20200226
